FAERS Safety Report 7483921-5 (Version None)
Quarter: 2011Q2

REPORT INFORMATION
  Report Type: 
  Country: None (occurrence: None)
  Receive Date: 20110517
  Receipt Date: 20110509
  Transmission Date: 20111010
  Serious: Yes (Other)
  Sender: FDA-Public Use
  Company Number: US-US-EMD SERONO, INC.-7050271

PATIENT
  Sex: Female

DRUGS (2)
  1. REBIF [Suspect]
     Indication: PRODUCT USED FOR UNKNOWN INDICATION
     Route: 058
     Dates: start: 20110201
  2. INSULIN PUMP [Concomitant]
     Indication: TYPE 1 DIABETES MELLITUS

REACTIONS (6)
  - HEADACHE [None]
  - FATIGUE [None]
  - VISUAL ACUITY REDUCED [None]
  - VOMITING [None]
  - DIABETES MELLITUS [None]
  - ASTHENIA [None]
